FAERS Safety Report 12294871 (Version 1)
Quarter: 2016Q2

REPORT INFORMATION
  Report Type: Spontaneous
  Country: US (occurrence: None)
  Receive Date: 20160421
  Receipt Date: 20160421
  Transmission Date: 20160815
  Serious: Yes (Hospitalization, Disabling)
  Sender: FDA-Public Use
  Company Number: None

PATIENT
  Age: 20 Year
  Sex: Male
  Weight: 127.01 kg

DRUGS (2)
  1. DIVALPROEX SODIUM, 500 MG [Suspect]
     Active Substance: DIVALPROEX SODIUM
     Indication: CONVULSION PROPHYLAXIS
     Route: 048
     Dates: start: 20150608, end: 20151111
  2. DIAZEPAM. [Concomitant]
     Active Substance: DIAZEPAM

REACTIONS (15)
  - Depression [None]
  - Loss of consciousness [None]
  - Seizure [None]
  - Choking [None]
  - Dyspnoea [None]
  - Educational problem [None]
  - Weight increased [None]
  - Anxiety [None]
  - Impaired driving ability [None]
  - Tremor [None]
  - Activities of daily living impaired [None]
  - Therapy cessation [None]
  - Mood swings [None]
  - Impaired work ability [None]
  - Condition aggravated [None]

NARRATIVE: CASE EVENT DATE: 20151130
